FAERS Safety Report 7049558-7 (Version None)
Quarter: 2010Q4

REPORT INFORMATION
  Report Type: 
  Country: None (occurrence: None)
  Receive Date: 20101018
  Receipt Date: 20101011
  Transmission Date: 20110411
  Serious: Yes (Other)
  Sender: FDA-Public Use
  Company Number: US-PFIZER INC-2010129541

PATIENT
  Sex: Female
  Weight: 86.168 kg

DRUGS (1)
  1. CELEBREX [Suspect]
     Indication: ARTHRITIS
     Dosage: 200 MG, 1X/DAY
     Route: 048
     Dates: start: 19990101, end: 20090101

REACTIONS (3)
  - NERVE INJURY [None]
  - PAIN [None]
  - SURGERY [None]
